FAERS Safety Report 15463691 (Version 1)
Quarter: 2018Q4

REPORT INFORMATION
  Report Type: Spontaneous
  Country: US (occurrence: US)
  Receive Date: 20181004
  Receipt Date: 20181004
  Transmission Date: 20190204
  Serious: No
  Sender: FDA-Public Use
  Company Number: US-MYLANLABS-2018M1069570

PATIENT
  Sex: Female
  Weight: 86.16 kg

DRUGS (1)
  1. ESTRADIOL TRANSDERMAL SYSTEM [Suspect]
     Active Substance: ESTRADIOL
     Indication: PRODUCT USED FOR UNKNOWN INDICATION
     Dosage: UNK UNK, QW
     Route: 062

REACTIONS (9)
  - Product residue present [Unknown]
  - Somnolence [Unknown]
  - Application site rash [Unknown]
  - Insomnia [Unknown]
  - Sluggishness [Unknown]
  - Application site irritation [Unknown]
  - Application site pruritus [Not Recovered/Not Resolved]
  - Application site pain [Not Recovered/Not Resolved]
  - Mood swings [Unknown]
